FAERS Safety Report 5074716-0 (Version None)
Quarter: 2006Q3

REPORT INFORMATION
  Report Type: 
  Country: None (occurrence: None)
  Receive Date: 20060807
  Receipt Date: 20060726
  Transmission Date: 20061208
  Serious: Yes (Other)
  Sender: FDA-Public Use
  Company Number: 2006092388

PATIENT
  Age: 33 Year
  Sex: Female
  Weight: 63 kg

DRUGS (5)
  1. LYRICA [Suspect]
     Indication: DIABETIC NEUROPATHY
     Dosage: ORAL
     Route: 048
  2. SERTRALINE [Concomitant]
  3. LANTUS [Concomitant]
  4. NOVORAPID (INSULIN ASPART) [Concomitant]
  5. FOLIC ACID [Concomitant]

REACTIONS (5)
  - DRUG EXPOSURE BEFORE PREGNANCY [None]
  - DRUG EXPOSURE DURING PREGNANCY [None]
  - DYSURIA [None]
  - FALL [None]
  - HYPOTENSION [None]
